FAERS Safety Report 4600594-7 (Version None)
Quarter: 2005Q1

REPORT INFORMATION
  Report Type: 
  Country: None (occurrence: None)
  Receive Date: 20050127
  Receipt Date: 20041011
  Transmission Date: 20050727
  Serious: No
  Sender: FDA-Public Use
  Company Number: USA041080667

PATIENT
  Age: 18 Year
  Sex: Female
  Weight: 77 kg

DRUGS (1)
  1. STRATTERA [Suspect]
     Indication: ATTENTION DEFICIT/HYPERACTIVITY DISORDER
     Dates: start: 20040901, end: 20041008

REACTIONS (2)
  - CRYING [None]
  - MOOD SWINGS [None]
